FAERS Safety Report 4952459-9 (Version None)
Quarter: 2006Q1

REPORT INFORMATION
  Report Type: 
  Country: None (occurrence: None)
  Receive Date: 20060317
  Receipt Date: 20060302
  Transmission Date: 20060701
  Serious: Yes (Other)
  Sender: FDA-Public Use
  Company Number: PHHO2005JP03027

PATIENT
  Age: 62 Year
  Sex: Female
  Weight: 52.0276 kg

DRUGS (3)
  1. VISUDYNE [Suspect]
     Indication: MACULAR DEGENERATION
     Dosage: 4.38 ML DAILY IV
     Route: 042
     Dates: start: 20041118, end: 20041118
  2. JUVELA [Concomitant]
  3. NIFLAN [Concomitant]

REACTIONS (2)
  - DYSGEUSIA [None]
  - PAROSMIA [None]
